FAERS Safety Report 13538321 (Version 1)
Quarter: 2017Q2

REPORT INFORMATION
  Report Type: Spontaneous
  Country: FR (occurrence: FR)
  Receive Date: 20170512
  Receipt Date: 20170512
  Transmission Date: 20170830
  Serious: Yes (Other)
  Sender: FDA-Public Use
  Company Number: FR-AMGEN-FRASP2017069574

PATIENT
  Age: 70 Year

DRUGS (8)
  1. XGEVA [Suspect]
     Active Substance: DENOSUMAB
     Indication: PRODUCT USED FOR UNKNOWN INDICATION
     Dosage: UNK
     Route: 065
  2. XELODA [Concomitant]
     Active Substance: CAPECITABINE
  3. FASLODEX [Concomitant]
     Active Substance: FULVESTRANT
  4. ARIMIDEX [Concomitant]
     Active Substance: ANASTROZOLE
  5. AFINITOR [Concomitant]
     Active Substance: EVEROLIMUS
  6. NOLVADEX [Concomitant]
     Active Substance: TAMOXIFEN CITRATE
  7. TAXOL [Concomitant]
     Active Substance: PACLITAXEL
  8. EXEMESTANE. [Concomitant]
     Active Substance: EXEMESTANE

REACTIONS (1)
  - Osteonecrosis of jaw [Unknown]
